FAERS Safety Report 11890302 (Version 1)
Quarter: 2016Q1

REPORT INFORMATION
  Report Type: Report from Study
  Country: BE (occurrence: BE)
  Receive Date: 20160105
  Receipt Date: 20160105
  Transmission Date: 20160526
  Serious: Yes (Hospitalization, Other)
  Sender: FDA-Public Use
  Company Number: PHHY2014BE106190

PATIENT
  Age: 41 Year
  Sex: Male

DRUGS (2)
  1. GILENYA [Suspect]
     Active Substance: FINGOLIMOD HYDROCHLORIDE
     Indication: MULTIPLE SCLEROSIS
     Dosage: 0.5 MG, UNK
     Route: 048
     Dates: start: 20120926
  2. SOFRASOLONE [Suspect]
     Active Substance: FRAMYCETIN SULFATE\NAPHAZOLINE NITRATE\PREDNISOLONE ACETATE
     Indication: PRODUCT USED FOR UNKNOWN INDICATION
     Dosage: UNK
     Route: 065
     Dates: start: 201212, end: 201311

REACTIONS (5)
  - Nasal obstruction [Recovered/Resolved]
  - Drug abuse [Unknown]
  - Treatment failure [Unknown]
  - Rhinitis [Unknown]
  - Nasal turbinate hypertrophy [Unknown]

NARRATIVE: CASE EVENT DATE: 20140120
